FAERS Safety Report 4639094-7 (Version None)
Quarter: 2005Q2

REPORT INFORMATION
  Report Type: 
  Country: None (occurrence: None)
  Receive Date: 20050418
  Receipt Date: 20050408
  Transmission Date: 20051028
  Serious: Yes (Hospitalization)
  Sender: FDA-Public Use
  Company Number: 2005057351

PATIENT
  Age: 53 Year
  Sex: Female

DRUGS (6)
  1. LIPITOR [Suspect]
     Indication: ILL-DEFINED DISORDER
     Dosage: 10 MG (10 MG, 1 IN 1 D), ORAL
     Route: 048
     Dates: start: 20001219, end: 20050128
  2. ASPIRIN [Concomitant]
  3. DILTIAZEM HYDROCHLORIDE [Concomitant]
  4. CETIRIZINE (CETIRIZINE) [Concomitant]
  5. FAMOTIDINE [Concomitant]
  6. TENOXICAM (TENOXICAM) [Concomitant]

REACTIONS (8)
  - ANGINA PECTORIS [None]
  - ARTERIOSPASM CORONARY [None]
  - CARDIAC STRESS TEST ABNORMAL [None]
  - DEPRESSION [None]
  - DYSPNOEA [None]
  - EXERCISE TOLERANCE DECREASED [None]
  - MYALGIA [None]
  - PAIN IN EXTREMITY [None]
